FAERS Safety Report 5265055-3 (Version None)
Quarter: 2007Q1

REPORT INFORMATION
  Report Type: 
  Country: None (occurrence: None)
  Receive Date: 20061122
  Receipt Date: 20060731
  Transmission Date: 20070707
  Serious: Yes (Hospitalization)
  Sender: FDA-Public Use
  Company Number: 2006MP000922

PATIENT
  Age: 58 Year
  Sex: Male

DRUGS (13)
  1. GLIADEL [Suspect]
     Indication: GLIOBLASTOMA MULTIFORME
     Dosage: X1; ICER
     Dates: start: 20060316
  2. 06-BENZYLGUANINE (06BG) [Suspect]
     Indication: GLIOBLASTOMA MULTIFORME
     Dosage: SEE IMAGE
     Route: 042
     Dates: start: 20060316, end: 20060320
  3. DILANTIN [Concomitant]
  4. KEPPRA [Concomitant]
  5. ATIVAN [Concomitant]
  6. CELEXA [Concomitant]
  7. COLACE [Concomitant]
  8. PEPCID [Concomitant]
  9. SENOKOT [Concomitant]
  10. MULTI-VITAMIN [Concomitant]
  11. POTASSIUIM CHLORIDE [Concomitant]
  12. DECADRON [Concomitant]
  13. HYDROMORPHONE HCL [Concomitant]

REACTIONS (1)
  - HEMIPARESIS [None]
